FAERS Safety Report 4377573-0 (Version None)
Quarter: 2004Q2

REPORT INFORMATION
  Report Type: 
  Country: None (occurrence: None)
  Receive Date: 20040608
  Receipt Date: 20040527
  Transmission Date: 20050107
  Serious: Yes (Hospitalization)
  Sender: FDA-Public Use
  Company Number: 04P-150-0262356-00

PATIENT
  Age: 2 Year
  Sex: Female

DRUGS (4)
  1. ERGENYL (DEPAKENE SYRUP) (VALPROIC ACID) (VALPROIC ACID) [Suspect]
     Indication: EPILEPSY
     Dosage: 5 ML, 3 IN 1 D, ORAL
     Route: 048
     Dates: start: 20010901, end: 20040208
  2. KETOGENIC DIET [Suspect]
     Indication: DRUG USE FOR UNKNOWN INDICATION
     Dosage: ORAL
     Route: 048
     Dates: start: 20030901
  3. CLOBAZAM [Concomitant]
  4. PHENYTOIN [Concomitant]

REACTIONS (15)
  - ANAEMIA MACROCYTIC [None]
  - CONDITION AGGRAVATED [None]
  - CONVULSION [None]
  - DRUG INEFFECTIVE [None]
  - FATIGUE [None]
  - GAMMA-GLUTAMYLTRANSFERASE INCREASED [None]
  - GLUCOSE URINE PRESENT [None]
  - HYPOALBUMINAEMIA [None]
  - HYPOPHOSPHATAEMIA [None]
  - KETONURIA [None]
  - METABOLIC ACIDOSIS [None]
  - RENAL TUBULAR ACIDOSIS [None]
  - RESPIRATORY DISORDER [None]
  - THROMBOCYTOPENIA [None]
  - TRANSAMINASES INCREASED [None]
